FAERS Safety Report 16237278 (Version 1)
Quarter: 2019Q2

REPORT INFORMATION
  Report Type: Spontaneous
  Country: US (occurrence: US)
  Receive Date: 20190320
  Receipt Date: 20190320
  Transmission Date: 20190711
  Serious: Yes (Other)
  Sender: FDA-Public Use
  Company Number: None

PATIENT
  Age: 84 Year
  Sex: Male
  Weight: 81.65 kg

DRUGS (2)
  1. LOSARTAN PILLS 25 MG [Suspect]
     Active Substance: LOSARTAN
     Indication: BLOOD PRESSURE MEASUREMENT
     Route: 048
  2. LOSARTAN PILLS 50MG [Suspect]
     Active Substance: LOSARTAN
     Route: 048

REACTIONS (4)
  - Dry mouth [None]
  - Oral discomfort [None]
  - Hypoaesthesia oral [None]
  - Dry eye [None]
